FAERS Safety Report 9395463 (Version 2)
Quarter: 2013Q4

REPORT INFORMATION
  Report Type: Spontaneous
  Country: FR (occurrence: FR)
  Receive Date: 20130711
  Receipt Date: 20131203
  Transmission Date: 20140711
  Serious: Yes (Hospitalization, Other)
  Sender: FDA-Public Use
  Company Number: PHHY2013FR072368

PATIENT
  Age: 35 Year
  Sex: Male

DRUGS (2)
  1. VOLTARENE [Suspect]
     Indication: ANKYLOSING SPONDYLITIS
     Dosage: 75 MG, SELF MEDICATION
     Route: 048
  2. TRANDATE [Concomitant]
     Indication: HYPERTENSION
     Dosage: UNK UKN, UNK

REACTIONS (11)
  - Cardiac failure [Unknown]
  - Pleural effusion [Unknown]
  - Cough [Unknown]
  - Productive cough [Unknown]
  - Gastric ulcer [Not Recovered/Not Resolved]
  - Heart valve incompetence [Not Recovered/Not Resolved]
  - Dyspepsia [Unknown]
  - Blindness [Unknown]
  - Pericardial effusion [Unknown]
  - Aortic valve incompetence [Unknown]
  - Cardiac murmur [Unknown]
